FAERS Safety Report 6955466-X (Version None)
Quarter: 2010Q3

REPORT INFORMATION
  Report Type: 
  Country: None (occurrence: None)
  Receive Date: 20100830
  Receipt Date: 20100818
  Transmission Date: 20110219
  Serious: Yes (Death, Life-Threatening)
  Sender: FDA-Public Use
  Company Number: JP-PFIZER INC-2010092161

PATIENT
  Age: 63 Year
  Sex: Male
  Weight: 50 kg

DRUGS (21)
  1. SUNITINIB MALATE [Suspect]
     Indication: RENAL CELL CARCINOMA
     Dosage: 50 MG, 1X/DAY
     Route: 048
     Dates: start: 20091113, end: 20091130
  2. NEUROTROPIN [Concomitant]
     Dosage: 1 DF, 3X/DAY
     Route: 048
     Dates: end: 20091202
  3. RINLAXER [Concomitant]
     Dosage: 250 MG, 3X/DAY
     Route: 048
     Dates: end: 20091202
  4. METHYCOBAL [Concomitant]
     Dosage: 500 UG, 3X/DAY
     Route: 048
     Dates: end: 20091202
  5. PURSENNID [Concomitant]
     Dosage: 24 MG, 1X/DAY
     Route: 048
     Dates: end: 20090202
  6. BASEN [Concomitant]
     Dosage: 0.2 MG, 3X/DAY
     Route: 048
     Dates: end: 20091202
  7. AZELASTINE HCL [Concomitant]
     Dosage: 16 MG, 1X/DAY
     Route: 048
     Dates: end: 20091202
  8. LOXONIN [Concomitant]
     Dosage: 60 MG, 3X/DAY
     Route: 048
     Dates: start: 20091110, end: 20091202
  9. SELBEX [Concomitant]
     Dosage: 50 MG, 3X/DAY
     Route: 048
     Dates: start: 20091110, end: 20091202
  10. LENDORMIN [Concomitant]
     Dosage: 0.25 MG, AS NEEDED
     Route: 048
     Dates: end: 20091202
  11. GASTER [Concomitant]
     Dosage: 10 MG, 2X/DAY
     Route: 048
     Dates: start: 20091116, end: 20091202
  12. URSO 250 [Concomitant]
     Dosage: 100 MG, 3X/DAY
     Route: 048
     Dates: start: 20091117, end: 20091202
  13. HYPEN [Concomitant]
     Dosage: UNK
     Route: 048
     Dates: start: 20091112, end: 20091202
  14. OXYCONTIN [Concomitant]
     Dosage: 5 MG, 2X/DAY
     Route: 048
     Dates: start: 20091124, end: 20091202
  15. MAGMITT [Concomitant]
     Dosage: 330 MG, 3X/DAY
     Route: 048
     Dates: start: 20091124, end: 20091202
  16. ISOBIDE [Concomitant]
     Dosage: 30 MG, 3X/DAY
     Route: 048
     Dates: start: 20091125, end: 20091202
  17. PASTARON [Concomitant]
     Dosage: UNK
     Route: 062
     Dates: start: 20091116, end: 20091202
  18. KENALOG [Concomitant]
     Dosage: UNK
     Route: 062
     Dates: start: 20091122, end: 20091202
  19. AZUNOL [Concomitant]
     Dosage: UNK
     Route: 048
     Dates: start: 20091124, end: 20091202
  20. GLYCEOL [Concomitant]
     Dosage: 200 ML, 2X/DAY
     Route: 042
     Dates: end: 20091124
  21. DECADRON [Concomitant]
     Dosage: 1.5 MG, 2X/DAY
     Route: 042
     Dates: end: 20091124

REACTIONS (10)
  - ABDOMINAL DISTENSION [None]
  - BLOOD PRESSURE DECREASED [None]
  - CONDITION AGGRAVATED [None]
  - DISSEMINATED INTRAVASCULAR COAGULATION [None]
  - ELECTROCARDIOGRAM T WAVE AMPLITUDE INCREASED [None]
  - MALIGNANT NEOPLASM PROGRESSION [None]
  - PLATELET COUNT DECREASED [None]
  - PROTHROMBIN TIME PROLONGED [None]
  - RENAL CELL CARCINOMA [None]
  - TUMOUR HAEMORRHAGE [None]
